FAERS Safety Report 23640593 (Version 1)
Quarter: 2024Q1

REPORT INFORMATION
  Report Type: Report from Study
  Country: US (occurrence: None)
  Receive Date: 20240318
  Receipt Date: 20240318
  Transmission Date: 20240410
  Serious: Yes (Other)
  Sender: FDA-Public Use
  Company Number: 2024A060322

PATIENT
  Sex: Male

DRUGS (1)
  1. CALQUENCE [Suspect]
     Active Substance: ACALABRUTINIB
     Indication: Chronic lymphocytic leukaemia
     Route: 048
     Dates: start: 202108

REACTIONS (6)
  - Arthritis [Unknown]
  - Asthma [Unknown]
  - Decreased activity [Unknown]
  - Depressed mood [Unknown]
  - Joint injury [Unknown]
  - Contusion [Unknown]
